FAERS Safety Report 7933615-4 (Version None)
Quarter: 2011Q4

REPORT INFORMATION
  Report Type: 
  Country: None (occurrence: None)
  Receive Date: 20111122
  Receipt Date: 20111109
  Transmission Date: 20120403
  Serious: Yes (Other)
  Sender: FDA-Public Use
  Company Number: HU-ROCHE-1006982

PATIENT
  Age: 18 Year
  Sex: Male

DRUGS (8)
  1. BIPERIDEN HYDROCHLORIDE TAB [Concomitant]
  2. CLONAZEPAM [Suspect]
     Indication: DYSTONIA
     Route: 065
  3. CLONAZEPAM [Suspect]
     Route: 040
  4. MIDAZOLAM HCL [Suspect]
     Indication: DYSTONIA
     Route: 042
  5. OLANZAPINE [Concomitant]
  6. CLOZAPINE [Concomitant]
     Indication: SCHIZOPHRENIA
     Dates: start: 20091001
  7. RISPERIDONE [Concomitant]
     Indication: SCHIZOPHRENIA
  8. HALOPERIDOL [Concomitant]
     Indication: PSYCHOTIC DISORDER

REACTIONS (2)
  - REBOUND EFFECT [None]
  - DYSTONIA [None]
